FAERS Safety Report 15353713 (Version 2)
Quarter: 2018Q3

REPORT INFORMATION
  Report Type: Report from Study
  Country: US (occurrence: US)
  Receive Date: 20180905
  Receipt Date: 20180924
  Transmission Date: 20181010
  Serious: No
  Sender: FDA-Public Use
  Company Number: US-ALEXION PHARMACEUTICALS INC.-A201811407

PATIENT
  Sex: Female

DRUGS (1)
  1. SOLIRIS [Suspect]
     Active Substance: ECULIZUMAB
     Indication: MYASTHENIA GRAVIS
     Dosage: UNK
     Route: 065

REACTIONS (6)
  - Dysphagia [Recovered/Resolved]
  - Gait disturbance [Recovering/Resolving]
  - Contusion [Unknown]
  - Musculoskeletal stiffness [Not Recovered/Not Resolved]
  - Peripheral swelling [Unknown]
  - Poor venous access [Not Recovered/Not Resolved]
